FAERS Safety Report 23574878 (Version 1)
Quarter: 2024Q1

REPORT INFORMATION
  Report Type: Other
  Country: US (occurrence: US)
  Receive Date: 20240228
  Receipt Date: 20240228
  Transmission Date: 20240409
  Serious: Yes (Hospitalization, Other)
  Sender: FDA-Public Use
  Company Number: US-Caplin Steriles Limited-2153774

PATIENT
  Age: 50 Year
  Sex: Male

DRUGS (1)
  1. TRANEXAMIC ACID [Suspect]
     Active Substance: TRANEXAMIC ACID
     Route: 037

REACTIONS (5)
  - Status epilepticus [Recovered/Resolved]
  - Memory impairment [Unknown]
  - Muscular weakness [Unknown]
  - Hypotension [Unknown]
  - Incorrect route of product administration [Unknown]
